FAERS Safety Report 13039830 (Version 1)
Quarter: 2016Q4

REPORT INFORMATION
  Report Type: Spontaneous
  Country: FR (occurrence: FR)
  Receive Date: 20161219
  Receipt Date: 20161219
  Transmission Date: 20170207
  Serious: Yes (Hospitalization, Other)
  Sender: FDA-Public Use
  Company Number: FR-ASTRAZENECA-2016SF32866

PATIENT
  Age: 24852 Day
  Sex: Female

DRUGS (13)
  1. PLAVIX [Concomitant]
     Active Substance: CLOPIDOGREL BISULFATE
  2. VENTOLINE [Concomitant]
     Active Substance: ALBUTEROL
  3. LASILIX [Suspect]
     Active Substance: FUROSEMIDE
     Indication: HYPERTENSION
     Route: 048
  4. TAHOR [Suspect]
     Active Substance: ATORVASTATIN CALCIUM
     Indication: DYSLIPIDAEMIA
     Route: 048
  5. EUPRESSYL [Suspect]
     Active Substance: URAPIDIL
     Indication: HYPERTENSION
     Route: 048
  6. ISOPHANE INSULIN [Concomitant]
     Active Substance: INSULIN NOS
  7. PYOSTACINE [Suspect]
     Active Substance: PRISTINAMYCIN
     Indication: LUNG INFECTION
     Route: 048
  8. INEXIUM [Concomitant]
     Active Substance: ESOMEPRAZOLE
     Dosage: 20.0MG UNKNOWN
  9. SYMBICORT [Concomitant]
     Active Substance: BUDESONIDE\FORMOTEROL FUMARATE DIHYDRATE
  10. ATACAND [Suspect]
     Active Substance: CANDESARTAN CILEXETIL
     Indication: HYPERTENSION
     Route: 048
  11. SPIRIVA [Concomitant]
     Active Substance: TIOTROPIUM BROMIDE MONOHYDRATE
  12. METFORMINE [Suspect]
     Active Substance: METFORMIN HYDROCHLORIDE
     Indication: TYPE 2 DIABETES MELLITUS
     Dosage: NON AZ PRODUCT, 1000 MG THREE TIMES A DAY
     Route: 048
  13. KARDEGIC [Concomitant]
     Active Substance: ASPIRIN LYSINE
     Dosage: 75.0MG UNKNOWN

REACTIONS (5)
  - Hyponatraemia [Unknown]
  - Agitation [Unknown]
  - Delusion [Unknown]
  - Acute kidney injury [Recovered/Resolved]
  - Metabolic acidosis [Unknown]

NARRATIVE: CASE EVENT DATE: 20140315
